FAERS Safety Report 18127645 (Version 1)
Quarter: 2020Q3

REPORT INFORMATION
  Report Type: Spontaneous
  Country: US (occurrence: US)
  Receive Date: 20200810
  Receipt Date: 20200810
  Transmission Date: 20201103
  Serious: No
  Sender: FDA-Public Use
  Company Number: US-GLENMARK PHARMACEUTICALS-2019GMK042739

PATIENT

DRUGS (1)
  1. ONDANSETRON ORALLY DISINTEGRATING TABLETS [Suspect]
     Active Substance: ONDANSETRON
     Indication: NAUSEA
     Dosage: 12 MG, TID (EVERY 8 HOURS)
     Route: 048
     Dates: start: 20190815, end: 20190816

REACTIONS (2)
  - Prescription drug used without a prescription [Unknown]
  - Product use in unapproved indication [Unknown]
